FAERS Safety Report 5050452-1 (Version None)
Quarter: 2006Q3

REPORT INFORMATION
  Report Type: 
  Country: None (occurrence: None)
  Receive Date: 20060713
  Receipt Date: 20060627
  Transmission Date: 20061208
  Serious: Yes (Death)
  Sender: FDA-Public Use
  Company Number: MX-MERCK-0607MEX00009

PATIENT
  Age: 43 Year
  Sex: Male

DRUGS (1)
  1. INVANZ [Suspect]
     Indication: ABDOMINAL INFECTION
     Route: 030
     Dates: start: 20060504, end: 20060510

REACTIONS (1)
  - CARDIAC ARREST [None]
